FAERS Safety Report 23889522 (Version 1)
Quarter: 2024Q2

REPORT INFORMATION
  Report Type: Spontaneous
  Country: US (occurrence: None)
  Receive Date: 20240523
  Receipt Date: 20240523
  Transmission Date: 20240716
  Serious: No
  Sender: FDA-Public Use
  Company Number: None

PATIENT

DRUGS (2)
  1. READY-TO-USE [Suspect]
     Active Substance: SODIUM PHOSPHATE, DIBASIC\SODIUM PHOSPHATE, MONOBASIC
     Route: 054
  2. RUGBY EYE WASH [Suspect]
     Active Substance: WATER
     Dosage: OTHER ROUTE : EXTERNAL ;?
     Route: 050

REACTIONS (2)
  - Product packaging confusion [None]
  - Circumstance or information capable of leading to medication error [None]
